FAERS Safety Report 6313406-0 (Version None)
Quarter: 2009Q3

REPORT INFORMATION
  Report Type: 
  Country: None (occurrence: None)
  Receive Date: 20090814
  Receipt Date: 20090731
  Transmission Date: 20100115
  Serious: Yes (Other)
  Sender: FDA-Public Use
  Company Number: RENA-1000514

PATIENT
  Age: 72 Year
  Sex: Female
  Weight: 80 kg

DRUGS (7)
  1. RENAGEL [Suspect]
     Indication: HYPERPHOSPHATAEMIA
     Dosage: 800 MG, QDX5, ORAL
     Route: 048
     Dates: start: 20070814
  2. DREISAVIT (ASCORBIC ACID, CALCIUM PANTOTHENATE, FOLIC ACID, NICOTINAMI [Concomitant]
  3. LANSOPRAZOL A (LANSOPRAZOLE) [Concomitant]
  4. ACETYLSALICYLATE (ACETYLSALICYLATE) [Concomitant]
  5. ALLO-PUREN (ALLOPURINOL) [Concomitant]
  6. LEVOTHYROXINE SODIUM [Concomitant]
  7. CITALOPRAM HYDROBROMIDE [Concomitant]

REACTIONS (2)
  - DIARRHOEA [None]
  - GASTROINTESTINAL MOTILITY DISORDER [None]
